FAERS Safety Report 25797718 (Version 1)
Quarter: 2025Q3

REPORT INFORMATION
  Report Type: Spontaneous
  Country: US (occurrence: None)
  Receive Date: 20250912
  Receipt Date: 20250912
  Transmission Date: 20251021
  Serious: Yes (Other)
  Sender: FDA-CTU
  Company Number: None

PATIENT
  Age: 54 Year
  Sex: Female
  Weight: 70.31 kg

DRUGS (1)
  1. OTEZLA [Suspect]
     Active Substance: APREMILAST
     Indication: Psoriatic arthropathy
     Dosage: TAKE 1 TABLET BY MOUTH TWICE DAILY AS DIRECTED.
     Route: 048

REACTIONS (1)
  - Neck injury [None]

NARRATIVE: CASE EVENT DATE: 20250731
